FAERS Safety Report 7399477-1 (Version None)
Quarter: 2011Q2

REPORT INFORMATION
  Report Type: 
  Country: None (occurrence: None)
  Receive Date: 20110407
  Receipt Date: 20110401
  Transmission Date: 20111010
  Serious: Yes (Death, Hospitalization, Other)
  Sender: FDA-Public Use
  Company Number: PHHO2010RU17667

PATIENT
  Age: 48 Year
  Sex: Male
  Weight: 71 kg

DRUGS (10)
  1. NIMESULIDE [Suspect]
     Indication: RHEUMATOID ARTHRITIS
     Dosage: 100 MG, BID
     Route: 048
     Dates: start: 20101008, end: 20101015
  2. METHOTREXAT [Concomitant]
  3. METYPRED ^ORION^ [Concomitant]
  4. FOLIC ACID [Concomitant]
  5. DICLOFENAC [Suspect]
     Indication: RHEUMATOID ARTHRITIS
     Dosage: 75 MG, QD
     Route: 030
     Dates: start: 20101008, end: 20101015
  6. MELOXICAM [Concomitant]
  7. NIMESULIDE [Suspect]
     Dosage: 100 MG, BID
     Route: 048
     Dates: start: 20101018
  8. RANISAN                                 /CZE/ [Concomitant]
  9. PREDNISOLONE [Concomitant]
  10. METHYLPREDNISOLONE [Concomitant]
     Indication: RHEUMATOID ARTHRITIS

REACTIONS (5)
  - RHEUMATOID ARTHRITIS [None]
  - DUODENAL ULCER HAEMORRHAGE [None]
  - LUNG DISORDER [None]
  - PNEUMONIA [None]
  - PYREXIA [None]
